FAERS Safety Report 11060702 (Version 3)
Quarter: 2015Q2

REPORT INFORMATION
  Report Type: Spontaneous
  Country: DE (occurrence: DE)
  Receive Date: 20150423
  Receipt Date: 20150624
  Transmission Date: 20150821
  Serious: Yes (Death, Hospitalization, Other)
  Sender: FDA-Public Use
  Company Number: DE-GILEAD-2015-0150106

PATIENT
  Age: 71 Year
  Sex: Male

DRUGS (5)
  1. PANTOPRAZOLE [Concomitant]
     Active Substance: PANTOPRAZOLE SODIUM
     Dosage: UNK
     Dates: start: 2011, end: 20150227
  2. ZYDELIG [Suspect]
     Active Substance: IDELALISIB
     Indication: PRODUCT USED FOR UNKNOWN INDICATION
     Dosage: UNK
     Route: 065
     Dates: start: 20140929, end: 20150226
  3. COTRIMOXAZOL [Concomitant]
     Active Substance: SULFAMETHOXAZOLE\TRIMETHOPRIM
     Dosage: UNK
     Dates: start: 2012, end: 20150225
  4. PREDNISONE. [Concomitant]
     Active Substance: PREDNISONE
     Indication: HAEMOLYSIS
     Dosage: UNK
     Dates: start: 2013, end: 20150225
  5. ACYCLOVIR                          /00587301/ [Concomitant]
     Active Substance: ACYCLOVIR
     Dosage: UNK
     Dates: start: 2012, end: 20150225

REACTIONS (6)
  - Lung infiltration [Unknown]
  - Diarrhoea [Unknown]
  - Multi-organ failure [Fatal]
  - Renal failure [Unknown]
  - Electrolyte imbalance [Unknown]
  - Dehydration [Unknown]

NARRATIVE: CASE EVENT DATE: 20150212
